FAERS Safety Report 7678365-7 (Version None)
Quarter: 2011Q3

REPORT INFORMATION
  Report Type: 
  Country: None (occurrence: None)
  Receive Date: 20110811
  Receipt Date: 20110805
  Transmission Date: 20111222
  Serious: No
  Sender: FDA-Public Use
  Company Number: US-PFIZER INC-2011181245

PATIENT
  Sex: Female

DRUGS (1)
  1. VFEND [Suspect]
     Dosage: UNK

REACTIONS (2)
  - ASTHENIA [None]
  - SOMNOLENCE [None]
